FAERS Safety Report 8185027-9 (Version None)
Quarter: 2012Q1

REPORT INFORMATION
  Report Type: 
  Country: None (occurrence: None)
  Receive Date: 20120301
  Receipt Date: 20120213
  Transmission Date: 20120608
  Serious: Yes (Hospitalization)
  Sender: FDA-Public Use
  Company Number: CIP11001977

PATIENT
  Age: 71 Year
  Sex: Female
  Weight: 65.3 kg

DRUGS (19)
  1. AMIODARONE HCL [Concomitant]
  2. PREMARIN [Concomitant]
  3. ADVAIR HFA [Concomitant]
  4. FAMOTIDINE [Concomitant]
  5. FERROUS SULFATE TAB [Concomitant]
  6. SPIRIVA [Concomitant]
  7. WELLBUTRIN XL [Concomitant]
  8. LISINOPRIL [Concomitant]
  9. FISH OIL (FISH OIL) [Concomitant]
  10. AMBIEN [Concomitant]
  11. VITAMIN C /00008001/ (ASCORBIC ACID) [Concomitant]
  12. FLOMAX /00889901/ (MORNIFLUMATE) [Concomitant]
  13. NITROFURANTOIN [Concomitant]
  14. ACTONEL [Suspect]
     Indication: OSTEOPOROSIS
     Dosage: 35MG ONCE WEEKLY, ORAL
     Route: 048
     Dates: start: 20010101, end: 20110701
  15. BETHANECHOL (BETHANECHOL) [Concomitant]
  16. ERGOCALCIFEROL [Concomitant]
  17. ALBUTEROL [Concomitant]
  18. ASPIRIN [Concomitant]
  19. METOPROLOL SUCCINATE [Concomitant]

REACTIONS (19)
  - FRACTURE DISPLACEMENT [None]
  - ECCHYMOSIS [None]
  - FEMUR FRACTURE [None]
  - HYPONATRAEMIA [None]
  - FACET JOINT SYNDROME [None]
  - INTERVERTEBRAL DISC DEGENERATION [None]
  - ORAL CANDIDIASIS [None]
  - COMMINUTED FRACTURE [None]
  - WHITE BLOOD CELL COUNT INCREASED [None]
  - FALL [None]
  - URINARY RETENTION [None]
  - MEMORY IMPAIRMENT [None]
  - BURSITIS [None]
  - FRACTURE DELAYED UNION [None]
  - HAEMORRHAGIC ANAEMIA [None]
  - POST PROCEDURAL OEDEMA [None]
  - DEPRESSIVE SYMPTOM [None]
  - DIARRHOEA [None]
  - FRACTURE NONUNION [None]
